FAERS Safety Report 8966564 (Version 1)
Quarter: 2012Q4

REPORT INFORMATION
  Report Type: 
  Country: US (occurrence: US)
  Receive Date: 20121217
  Receipt Date: 20121217
  Transmission Date: 20130627
  Serious: No
  Sender: FDA-Public Use
  Company Number: US-PFIZER INC-2012318477

PATIENT
  Age: 65 Year
  Sex: Male
  Weight: 87 kg

DRUGS (5)
  1. LIPITOR [Suspect]
     Indication: BLOOD CHOLESTEROL ABNORMAL
     Dosage: 20 mg, daily
     Dates: start: 2000
  2. TAMSULOSIN [Concomitant]
     Dosage: 0.4 mg, daily
  3. FINASTERIDE [Concomitant]
     Indication: KIDNEY INFECTION
     Dosage: UNK
  4. LISINOPRIL [Concomitant]
     Dosage: 5 mg, daily
  5. ASPIRIN [Concomitant]
     Indication: ANTICOAGULANT THERAPY
     Dosage: UNK

REACTIONS (1)
  - Memory impairment [Not Recovered/Not Resolved]
